FAERS Safety Report 21203098 (Version 1)
Quarter: 2022Q3

REPORT INFORMATION
  Report Type: Spontaneous
  Country: US (occurrence: US)
  Receive Date: 20220811
  Receipt Date: 20220811
  Transmission Date: 20221027
  Serious: No
  Sender: FDA-Public Use
  Company Number: US-OTSUKA-2021_029564

PATIENT
  Sex: Female

DRUGS (5)
  1. REXULTI [Suspect]
     Active Substance: BREXPIPRAZOLE
     Indication: Depression
     Dosage: 0.5 MG, QD
     Route: 065
  2. REXULTI [Suspect]
     Active Substance: BREXPIPRAZOLE
     Dosage: 1 MG, QD
     Route: 065
  3. Prstiq [Concomitant]
     Indication: Product used for unknown indication
     Dosage: 50 MG
     Route: 065
  4. OXTELLAR XR [Concomitant]
     Active Substance: OXCARBAZEPINE
     Indication: Product used for unknown indication
     Dosage: 600 MG
     Route: 065
  5. XANAX [Concomitant]
     Active Substance: ALPRAZOLAM
     Indication: Sleep disorder
     Dosage: 0.5 MG
     Route: 065

REACTIONS (6)
  - Mood altered [Not Recovered/Not Resolved]
  - Blood testosterone decreased [Unknown]
  - Weight increased [Not Recovered/Not Resolved]
  - Increased appetite [Not Recovered/Not Resolved]
  - Incorrect dose administered [Unknown]
  - Therapeutic response unexpected [Unknown]
